FAERS Safety Report 19004626 (Version 1)
Quarter: 2021Q1

REPORT INFORMATION
  Report Type: Spontaneous
  Country: US (occurrence: US)
  Receive Date: 20210312
  Receipt Date: 20210312
  Transmission Date: 20210420
  Serious: Yes (Other)
  Sender: FDA-Public Use
  Company Number: US-ASSERTIO THERAPEUTICS, INC.-US-2021AST000035

PATIENT

DRUGS (3)
  1. INDOMETHACIN ORAL SUSPENSION [Suspect]
     Active Substance: INDOMETHACIN
     Dosage: 25 MG, QID UPTO 32 COMPLETED WEEKS GESTATIONAL AGE
     Route: 048
  2. INDOMETHACIN ORAL SUSPENSION [Suspect]
     Active Substance: INDOMETHACIN
     Indication: PRODUCT USED FOR UNKNOWN INDICATION
     Dosage: 50 MG, QID UPTO 48 HOURS
     Route: 048
  3. INDOMETHACIN ORAL SUSPENSION [Suspect]
     Active Substance: INDOMETHACIN
     Dosage: 100 MG, LOADING DOSE

REACTIONS (2)
  - Foetal exposure during pregnancy [Unknown]
  - Ductus arteriosus stenosis foetal [Unknown]
